FAERS Safety Report 7171172-3 (Version None)
Quarter: 2010Q4

REPORT INFORMATION
  Report Type: 
  Country: None (occurrence: None)
  Receive Date: 20101123
  Receipt Date: 20100928
  Transmission Date: 20110411
  Serious: No
  Sender: FDA-Public Use
  Company Number: 019591

PATIENT
  Sex: Female
  Weight: 86.2 kg

DRUGS (9)
  1. CIMZIA [Suspect]
     Indication: CROHN'S DISEASE
     Dosage: 400 MG  1X/2 WEEKS, MEDICATION ON HOLD, SUBCUTANEOUS
     Route: 058
     Dates: start: 20090804, end: 20100904
  2. M.V.I. [Concomitant]
  3. FLUTICASONE PROPIONATE [Concomitant]
  4. FOLIC ACID [Concomitant]
  5. PREDNISONE [Concomitant]
  6. BENAZEPRIL [Concomitant]
  7. ETODOLAC [Concomitant]
  8. ESTROVEN [Concomitant]
  9. DARVOCET-N 100 [Concomitant]

REACTIONS (1)
  - PAIN IN EXTREMITY [None]
